FAERS Safety Report 9778249 (Version 2)
Quarter: 2015Q1

REPORT INFORMATION
  Report Type: Spontaneous
  Country: US (occurrence: US)
  Receive Date: 20131223
  Receipt Date: 20150119
  Transmission Date: 20150721
  Serious: Yes (Other)
  Sender: FDA-Public Use
  Company Number: US-ELI_LILLY_AND_COMPANY-US201312007096

PATIENT
  Age: 40 Year
  Sex: Male

DRUGS (1)
  1. TESTOSTERONE. [Suspect]
     Active Substance: TESTOSTERONE
     Indication: ANDROGEN REPLACEMENT THERAPY
     Route: 061

REACTIONS (13)
  - Subdural haematoma [Recovered/Resolved]
  - Confabulation [Recovered/Resolved]
  - Akathisia [Recovered/Resolved]
  - Cerebral haemorrhage [Recovered/Resolved]
  - Skeletal injury [Recovered/Resolved]
  - Agitation [Recovered/Resolved]
  - Confusional state [Recovered/Resolved]
  - Road traffic accident [Recovered/Resolved]
  - Disorientation [Recovered/Resolved]
  - Aggression [Recovered/Resolved]
  - Blood pressure increased [Recovered/Resolved]
  - Paranoia [Recovered/Resolved]
  - Cognitive disorder [Recovered/Resolved]
